FAERS Safety Report 10613896 (Version 4)
Quarter: 2015Q2

REPORT INFORMATION
  Report Type: Spontaneous
  Country: US (occurrence: US)
  Receive Date: 20141128
  Receipt Date: 20150512
  Transmission Date: 20150821
  Serious: No
  Sender: FDA-Public Use
  Company Number: US-GLAXOSMITHKLINE-A1065423A

PATIENT
  Sex: Female

DRUGS (3)
  1. BUPROPION HYDROCHLORIDE PROLONGED-RELEASE TABLET [Suspect]
     Active Substance: BUPROPION HYDROCHLORIDE
     Indication: TOBACCO USER
     Route: 048
  2. UNKNOWN [Concomitant]
     Active Substance: UNSPECIFIED INGREDIENT
  3. BUPROPION HYDROCHLORIDE PROLONGED-RELEASE TABLET [Suspect]
     Active Substance: BUPROPION HYDROCHLORIDE
     Indication: DEPRESSION

REACTIONS (2)
  - Drug ineffective [Unknown]
  - Feeling abnormal [Unknown]
